FAERS Safety Report 9714588 (Version 2)
Quarter: 2014Q4

REPORT INFORMATION
  Report Type: Report from Study
  Country: US (occurrence: US)
  Receive Date: 20131126
  Receipt Date: 20141202
  Transmission Date: 20150529
  Serious: Yes (Hospitalization, Other)
  Sender: FDA-Public Use
  Company Number: US-ALEXION-A200901173

PATIENT

DRUGS (10)
  1. SOLIRIS [Suspect]
     Active Substance: ECULIZUMAB
     Dosage: 900 MG, Q2W
     Route: 042
     Dates: start: 20090210, end: 20090210
  2. SOLIRIS [Suspect]
     Active Substance: ECULIZUMAB
     Dosage: 600 MG, QW
     Route: 042
     Dates: start: 20090326, end: 20090428
  3. TYLENOL [Concomitant]
     Active Substance: ACETAMINOPHEN
     Indication: PREMEDICATION
  4. BENADRYL [Concomitant]
     Active Substance: DIPHENHYDRAMINE HYDROCHLORIDE
     Indication: PREMEDICATION
  5. SOLIRIS [Suspect]
     Active Substance: ECULIZUMAB
     Indication: PAROXYSMAL NOCTURNAL HAEMOGLOBINURIA
     Dosage: 600 MG, QW
     Route: 042
     Dates: start: 20090108, end: 20090210
  6. SOLIRIS [Suspect]
     Active Substance: ECULIZUMAB
     Dosage: UNK
     Route: 042
     Dates: start: 20090924, end: 20091009
  7. FOLIC ACID. [Concomitant]
     Active Substance: FOLIC ACID
     Indication: SUPPLEMENTATION THERAPY
     Dosage: UNK
     Route: 065
     Dates: start: 200911
  8. SOLIRIS [Suspect]
     Active Substance: ECULIZUMAB
     Dosage: 900 MG, Q2W
     Route: 042
     Dates: start: 20090428, end: 20090717
  9. VITAMIN B12 [Concomitant]
     Active Substance: CYANOCOBALAMIN
     Indication: SUPPLEMENTATION THERAPY
     Dosage: UNK,QMONTH
     Route: 030
  10. ULTRAM [Concomitant]
     Active Substance: TRAMADOL HYDROCHLORIDE
     Indication: DYSMENORRHOEA
     Route: 065

REACTIONS (18)
  - Anaemia [Not Recovered/Not Resolved]
  - Fatigue [Unknown]
  - Abortion spontaneous [Unknown]
  - Dyspnoea [Unknown]
  - Iron overload [Unknown]
  - Pallor [Unknown]
  - Gastrointestinal disorder [Unknown]
  - Abdominal pain lower [Unknown]
  - Periorbital contusion [Unknown]
  - Anaemia [Recovered/Resolved]
  - Headache [Unknown]
  - Scleral haemorrhage [Unknown]
  - Haemoglobin decreased [Not Recovered/Not Resolved]
  - Haemolysis [Recovered/Resolved]
  - Treatment noncompliance [Unknown]
  - Exposure during pregnancy [Unknown]
  - Breast tenderness [Unknown]
  - Headache [Unknown]

NARRATIVE: CASE EVENT DATE: 20090127
